FAERS Safety Report 8877320 (Version 1)
Quarter: 2012Q4

REPORT INFORMATION
  Report Type: Spontaneous
  Country: US (occurrence: None)
  Receive Date: 20121026
  Receipt Date: 20121026
  Transmission Date: 20130627
  Serious: Yes (Life-Threatening, Hospitalization, Other)
  Sender: FDA-Public Use
  Company Number: 2012P1061121

PATIENT
  Age: 45 Day
  Sex: Female

DRUGS (1)
  1. OXYCODONE [Suspect]
     Route: 048

REACTIONS (4)
  - Respiratory distress [None]
  - Overdose [None]
  - Feeding disorder neonatal [None]
  - Apnoea [None]
